FAERS Safety Report 20016789 (Version 1)
Quarter: 2021Q4

REPORT INFORMATION
  Report Type: Spontaneous
  Country: US (occurrence: None)
  Receive Date: 20211105
  Receipt Date: 20211105
  Transmission Date: 20220303
  Serious: Yes (Other)
  Sender: FDA-Public Use
  Company Number: None

PATIENT
  Age: 63 Year

DRUGS (16)
  1. HIZENTRA [Suspect]
     Active Substance: HUMAN IMMUNOGLOBULIN G
     Dosage: FREQUENCY : WEEKLY;?
     Route: 058
     Dates: start: 20200415
  2. ACETAMINOPHEN [Concomitant]
  3. ADVAIR HFA [Concomitant]
  4. DIPHENHYDRAMINE [Concomitant]
  5. Estradiol-norethndrone [Concomitant]
  6. FOLIC ACID [Concomitant]
  7. HYDROXYCHLOROQUINE [Concomitant]
  8. IPRATROPIUM BROMIDE [Concomitant]
     Active Substance: IPRATROPIUM BROMIDE
  9. MELOXICAM [Concomitant]
  10. METHOTREXATE [Concomitant]
     Active Substance: METHOTREXATE
  11. METOPROLOL TARTRATE [Concomitant]
     Active Substance: METOPROLOL TARTRATE
  12. Patanase 0.6% [Concomitant]
  13. PILOCARPINE [Concomitant]
     Active Substance: PILOCARPINE
  14. PROAIR RESPICLICK [Concomitant]
     Active Substance: ALBUTEROL SULFATE
  15. VERAPAMIL [Concomitant]
     Active Substance: VERAPAMIL HYDROCHLORIDE
  16. Xiidra 5% [Concomitant]

REACTIONS (4)
  - Infusion site reaction [None]
  - Infusion site erythema [None]
  - Infusion site pain [None]
  - Product quality issue [None]

NARRATIVE: CASE EVENT DATE: 20211027
